APPROVED DRUG PRODUCT: OGESTREL 0.5/50-21
Active Ingredient: ETHINYL ESTRADIOL; NORGESTREL
Strength: 0.05MG;0.5MG **Federal Register determination that product was not discontinued or withdrawn for safety or effectiveness reasons**
Dosage Form/Route: TABLET;ORAL-21
Application: A075406 | Product #001
Applicant: WATSON LABORATORIES INC
Approved: Dec 15, 1999 | RLD: No | RS: No | Type: DISCN